FAERS Safety Report 12334338 (Version 1)
Quarter: 2016Q2

REPORT INFORMATION
  Report Type: Report from Study
  Country: US (occurrence: US)
  Receive Date: 20160504
  Receipt Date: 20160504
  Transmission Date: 20160815
  Serious: No
  Sender: FDA-Public Use
  Company Number: US-ABBVIE-15P-163-1397452-00

PATIENT
  Age: 66 Year
  Sex: Male
  Weight: 78.09 kg

DRUGS (7)
  1. FLOMAX [Concomitant]
     Active Substance: TAMSULOSIN HYDROCHLORIDE
     Indication: PRODUCT USED FOR UNKNOWN INDICATION
  2. SLOW MAG [Concomitant]
     Active Substance: MAGNESIUM CHLORIDE
     Indication: MAGNESIUM DEFICIENCY
  3. AVODART [Concomitant]
     Active Substance: DUTASTERIDE
     Indication: PRODUCT USED FOR UNKNOWN INDICATION
  4. CREON [Suspect]
     Active Substance: PANCRELIPASE AMYLASE\PANCRELIPASE LIPASE\PANCRELIPASE PROTEASE
     Dosage: 1 CAPSULE EACH MEAL
     Route: 048
     Dates: start: 201505
  5. CREON [Suspect]
     Active Substance: PANCRELIPASE AMYLASE\PANCRELIPASE LIPASE\PANCRELIPASE PROTEASE
     Indication: PANCREATIC CARCINOMA
     Dosage: 2 CAPSULES EACH MEAL
     Route: 048
     Dates: start: 201501, end: 201504
  6. COUMADIN [Concomitant]
     Active Substance: WARFARIN SODIUM
     Indication: THROMBOSIS PROPHYLAXIS
  7. FOLBEE PLUS [Concomitant]
     Indication: VITAMIN SUPPLEMENTATION

REACTIONS (2)
  - Abdominal distension [Recovering/Resolving]
  - Nausea [Recovering/Resolving]

NARRATIVE: CASE EVENT DATE: 201501
